FAERS Safety Report 8208794-4 (Version None)
Quarter: 2012Q1

REPORT INFORMATION
  Report Type: 
  Country: None (occurrence: None)
  Receive Date: 20120314
  Receipt Date: 20120307
  Transmission Date: 20120608
  Serious: Yes (Life-Threatening, Other)
  Sender: FDA-Public Use
  Company Number: RO-UCBSA-053019

PATIENT
  Age: 79 Year
  Sex: Male
  Weight: 80 kg

DRUGS (5)
  1. PENTOXIFILIN [Concomitant]
     Dosage: THERAPY DATE: }5 YEARS
     Route: 048
  2. ATORVASTATIN CALCIUM [Concomitant]
     Dosage: THERAPY DATE: }5 YEARS
     Route: 048
  3. RAMIPRIL [Concomitant]
     Dosage: THERAPY DATE:} 5 YEARS
     Route: 048
  4. ACENOCUMEROL [Concomitant]
     Dosage: THERAPY DATE: }5 YEARS
     Route: 048
  5. ALPROSTADIL [Suspect]
     Indication: ARTERITIS
     Route: 042
     Dates: start: 20120203, end: 20120209

REACTIONS (4)
  - BLOOD PRESSURE INCREASED [None]
  - SYNCOPE [None]
  - RESTLESSNESS [None]
  - CHILLS [None]
